FAERS Safety Report 18867621 (Version 1)
Quarter: 2021Q1

REPORT INFORMATION
  Report Type: Spontaneous
  Country: DE (occurrence: DE)
  Receive Date: 20210209
  Receipt Date: 20210209
  Transmission Date: 20210420
  Serious: Yes (Other)
  Sender: FDA-Public Use
  Company Number: NVSC2021DE023589

PATIENT
  Age: 76 Year
  Sex: Male
  Weight: 72 kg

DRUGS (28)
  1. FLUOROURACIL. [Suspect]
     Active Substance: FLUOROURACIL
     Dosage: 4390 MG
     Route: 042
     Dates: start: 20200707
  2. FLUOROURACIL. [Suspect]
     Active Substance: FLUOROURACIL
     Dosage: 3475 MG
     Route: 042
     Dates: start: 20201013
  3. FLUOROURACIL. [Suspect]
     Active Substance: FLUOROURACIL
     Dosage: 580 MG
     Route: 040
     Dates: start: 20201013
  4. FLUOROURACIL. [Suspect]
     Active Substance: FLUOROURACIL
     Dosage: 560 MG
     Route: 040
     Dates: start: 20200818
  5. OXALIPLATIN. [Suspect]
     Active Substance: OXALIPLATIN
     Dosage: 580 MG
     Route: 065
     Dates: start: 20201027
  6. VECTIBIX [Suspect]
     Active Substance: PANITUMUMAB
     Dosage: 440 MG
     Route: 042
     Dates: start: 20200707
  7. VECTIBIX [Suspect]
     Active Substance: PANITUMUMAB
     Dosage: 425 MG
     Route: 042
     Dates: start: 20201013
  8. FOLINIC ACID [Suspect]
     Active Substance: LEUCOVORIN
     Dosage: 580 MG
     Route: 065
     Dates: start: 20201013
  9. FOLINIC ACID [Suspect]
     Active Substance: LEUCOVORIN
     Dosage: 580 MG
     Route: 065
     Dates: start: 20201110
  10. FLUOROURACIL. [Suspect]
     Active Substance: FLUOROURACIL
     Indication: COLORECTAL CANCER METASTATIC
     Dosage: 730 MG
     Route: 040
     Dates: start: 20200707
  11. FLUOROURACIL. [Suspect]
     Active Substance: FLUOROURACIL
     Dosage: 590 MG
     Route: 040
     Dates: start: 20210118
  12. OXALIPLATIN. [Suspect]
     Active Substance: OXALIPLATIN
     Indication: COLORECTAL CANCER METASTATIC
     Dosage: 150 MG
     Route: 065
     Dates: start: 20200707
  13. VECTIBIX [Suspect]
     Active Substance: PANITUMUMAB
     Dosage: 410 MG
     Route: 042
     Dates: start: 20200818
  14. FOLINIC ACID [Suspect]
     Active Substance: LEUCOVORIN
     Dosage: 580 MG
     Route: 065
     Dates: start: 20200804
  15. FOLINIC ACID [Suspect]
     Active Substance: LEUCOVORIN
     Dosage: 560 MG
     Route: 065
     Dates: start: 20200818
  16. DEXAMETHASON [Concomitant]
     Active Substance: DEXAMETHASONE
     Indication: PROPHYLAXIS
     Dosage: 16 MG
     Route: 042
     Dates: start: 20200807
  17. OXALIPLATIN. [Suspect]
     Active Substance: OXALIPLATIN
     Dosage: 120 MG
     Route: 065
     Dates: start: 20200804
  18. VECTIBIX [Suspect]
     Active Substance: PANITUMUMAB
     Indication: COLORECTAL CANCER METASTATIC
     Dosage: 210 MG
     Route: 042
     Dates: start: 20200104
  19. ALOXI [Concomitant]
     Active Substance: PALONOSETRON HYDROCHLORIDE
     Indication: PROPHYLAXIS
     Dosage: 250 MG
     Route: 042
     Dates: start: 20200807
  20. FOLINIC ACID [Suspect]
     Active Substance: LEUCOVORIN
     Dosage: 120 MG
     Route: 065
     Dates: start: 20201027
  21. FLUOROURACIL. [Suspect]
     Active Substance: FLUOROURACIL
     Dosage: 3390 MG
     Route: 042
     Dates: start: 20200818
  22. FLUOROURACIL. [Suspect]
     Active Substance: FLUOROURACIL
     Dosage: 3550 MG
     Route: 042
     Dates: start: 20210118
  23. FOLINIC ACID [Suspect]
     Active Substance: LEUCOVORIN
     Dosage: 590 MG
     Route: 065
     Dates: start: 20210118
  24. A?HYDROCORT [Concomitant]
     Active Substance: HYDROCORTISONE SODIUM SUCCINATE
     Indication: PRODUCT USED FOR UNKNOWN INDICATION
     Dosage: 9999.99 UNK
     Route: 062
     Dates: start: 20200813, end: 202008
  25. FLUOROURACIL. [Suspect]
     Active Substance: FLUOROURACIL
     Dosage: 580 MG
     Route: 040
     Dates: start: 20200804
  26. VECTIBIX [Suspect]
     Active Substance: PANITUMUMAB
     Dosage: 225 MG
     Route: 042
     Dates: start: 20210118
  27. FOLINIC ACID [Suspect]
     Active Substance: LEUCOVORIN
     Indication: COLORECTAL CANCER METASTATIC
     Dosage: 730 MG
     Route: 065
     Dates: start: 20200707
  28. TAVEGIL [Concomitant]
     Active Substance: CLEMASTINE FUMARATE
     Indication: PROPHYLAXIS
     Dosage: 2 MG
     Route: 042
     Dates: start: 20200807

REACTIONS (2)
  - Extraocular muscle paresis [Not Recovered/Not Resolved]
  - Conjunctivitis [Not Recovered/Not Resolved]

NARRATIVE: CASE EVENT DATE: 20201118
